FAERS Safety Report 8031975-X (Version None)
Quarter: 2012Q1

REPORT INFORMATION
  Report Type: 
  Country: None (occurrence: None)
  Receive Date: 20120109
  Receipt Date: 20110323
  Transmission Date: 20120608
  Serious: No
  Sender: FDA-Public Use
  Company Number: US-ABBOTT-11P-163-0714211-00

PATIENT
  Age: 57 Year
  Sex: Female
  Weight: 106.69 kg

DRUGS (3)
  1. VICODIN [Suspect]
     Indication: PAIN
     Dosage: 5/500MG: 1-2 TABLETS EVERY 12 HOURS
     Dates: start: 20110317
  2. ATENOLOL [Concomitant]
     Indication: PRODUCT USED FOR UNKNOWN INDICATION
  3. HYDROCHLOROTHIAZIDE [Concomitant]
     Indication: PRODUCT USED FOR UNKNOWN INDICATION

REACTIONS (1)
  - DRUG INEFFECTIVE [None]
